FAERS Safety Report 4831125-4 (Version None)
Quarter: 2005Q4

REPORT INFORMATION
  Report Type: 
  Country: None (occurrence: None)
  Receive Date: 20051116
  Receipt Date: 20051116
  Transmission Date: 20060501
  Serious: Yes (Other)
  Sender: FDA-Public Use
  Company Number: None

PATIENT
  Sex: Male
  Weight: 113.3993 kg

DRUGS (1)
  1. CITAPROLAM   40MG    DR. REDDY'S [Suspect]
     Indication: DEPRESSION
     Dosage: 40MG   BID  PO
     Route: 048
     Dates: start: 20051102, end: 20051107

REACTIONS (4)
  - ERYTHEMA [None]
  - PRURITUS [None]
  - PURPURA [None]
  - THERAPEUTIC RESPONSE UNEXPECTED WITH DRUG SUBSTITUTION [None]
